FAERS Safety Report 5619685-7 (Version None)
Quarter: 2008Q1

REPORT INFORMATION
  Report Type: 
  Country: None (occurrence: None)
  Receive Date: 20080208
  Receipt Date: 20071119
  Transmission Date: 20080703
  Serious: No
  Sender: FDA-Public Use
  Company Number: A0688314A

PATIENT
  Age: 19 Month
  Sex: Male

DRUGS (1)
  1. ALTABAX [Suspect]
     Indication: STAPHYLOCOCCAL INFECTION
     Route: 061

REACTIONS (2)
  - APPLICATION SITE PAIN [None]
  - CRYING [None]
